FAERS Safety Report 6395238-0 (Version None)
Quarter: 2009Q4

REPORT INFORMATION
  Report Type: 
  Country: None (occurrence: None)
  Receive Date: 20091009
  Receipt Date: 20090929
  Transmission Date: 20100525
  Serious: Yes (Hospitalization, Other)
  Sender: FDA-Public Use
  Company Number: US-ROCHE-631488

PATIENT
  Sex: Female

DRUGS (1)
  1. MYCOPHENOLATE MOFETIL [Suspect]
     Route: 065
     Dates: start: 20060508

REACTIONS (7)
  - DIARRHOEA [None]
  - EFFUSION [None]
  - FALL [None]
  - HEAD INJURY [None]
  - MUSCLE STRAIN [None]
  - PNEUMONIA [None]
  - WRIST FRACTURE [None]
